FAERS Safety Report 9862067 (Version 1)
Quarter: 2014Q1

REPORT INFORMATION
  Report Type: Spontaneous
  Country: US (occurrence: None)
  Receive Date: 20140131
  Receipt Date: 20140131
  Transmission Date: 20141002
  Serious: Yes (Hospitalization)
  Sender: FDA-Public Use
  Company Number: None

PATIENT
  Age: 54 Year
  Sex: Male

DRUGS (2)
  1. FONDAPARINUX [Suspect]
     Route: 058
     Dates: start: 20111007, end: 20140129
  2. FONDAPARINUX [Suspect]
     Route: 058
     Dates: start: 20111007, end: 20140129

REACTIONS (1)
  - Pneumonia [None]
